FAERS Safety Report 23441134 (Version 1)
Quarter: 2024Q1

REPORT INFORMATION
  Report Type: Spontaneous
  Country: US (occurrence: US)
  Receive Date: 20240125
  Receipt Date: 20240125
  Transmission Date: 20240410
  Serious: Yes (Other)
  Sender: FDA-Public Use
  Company Number: US-JNJFOC-20240136235

PATIENT

DRUGS (10)
  1. CLEAN AND CLEAR ADVANTAGE ACNE SPOT TREATMENT [Suspect]
     Active Substance: SALICYLIC ACID
     Indication: Acne
     Route: 061
  2. CLEAN AND CLEAR ADVANTAGE ACNE SPOT TREATMENT [Suspect]
     Active Substance: SALICYLIC ACID
     Indication: Seborrhoea
  3. CLEAN AND CLEAR ADVANTAGE 3 IN 1 FOAMING ACNE WASH [Suspect]
     Active Substance: SALICYLIC ACID
     Indication: Acne
     Route: 061
  4. CLEAN AND CLEAR ADVANTAGE 3 IN 1 FOAMING ACNE WASH [Suspect]
     Active Substance: SALICYLIC ACID
     Indication: Seborrhoea
  5. COSMETICS [Suspect]
     Active Substance: COSMETICS
     Indication: Acne
     Route: 061
  6. COSMETICS [Suspect]
     Active Substance: COSMETICS
     Indication: Seborrhoea
  7. COSMETICS [Suspect]
     Active Substance: COSMETICS
     Indication: Acne
     Route: 061
  8. COSMETICS [Suspect]
     Active Substance: COSMETICS
     Indication: Seborrhoea
  9. COSMETICS [Suspect]
     Active Substance: COSMETICS
     Indication: Acne
     Route: 061
  10. COSMETICS [Suspect]
     Active Substance: COSMETICS
     Indication: Seborrhoea

REACTIONS (4)
  - Application site scar [Recovering/Resolving]
  - Acne [Recovering/Resolving]
  - Application site exfoliation [Recovering/Resolving]
  - Application site dryness [Recovering/Resolving]
